FAERS Safety Report 20558776 (Version 1)
Quarter: 2022Q1

REPORT INFORMATION
  Report Type: Spontaneous
  Country: US (occurrence: US)
  Receive Date: 20220307
  Receipt Date: 20220307
  Transmission Date: 20220423
  Serious: Yes (Life-Threatening, Other)
  Sender: FDA-Public Use
  Company Number: US-SA-SAC20220302000017

PATIENT
  Age: 61 Year
  Sex: Male

DRUGS (1)
  1. ZANTAC [Suspect]
     Active Substance: RANITIDINE HYDROCHLORIDE
     Indication: Dyspepsia
     Dosage: UNK, QD
     Dates: start: 200701, end: 201701

REACTIONS (4)
  - Gastrointestinal carcinoma [Unknown]
  - Lung neoplasm malignant [Unknown]
  - Bone cancer [Unknown]
  - Lymphoma [Unknown]

NARRATIVE: CASE EVENT DATE: 20180301
